FAERS Safety Report 10687207 (Version 1)
Quarter: 2015Q1

REPORT INFORMATION
  Report Type: Spontaneous
  Country: US (occurrence: US)
  Receive Date: 20150102
  Receipt Date: 20150102
  Transmission Date: 20150720
  Serious: Yes (Life-Threatening, Hospitalization)
  Sender: FDA-Public Use
  Company Number: US-SUN PHARMACEUTICAL INDUSTRIES LTD-2014SUN02972

PATIENT

DRUGS (1)
  1. AMLODIPINE BESYLATE 10 MG TABLET [Suspect]
     Active Substance: AMLODIPINE BESYLATE
     Indication: PRODUCT USED FOR UNKNOWN INDICATION
     Dosage: 300 MG, 30 TABLETS OF 10 MG EACH
     Route: 065

REACTIONS (6)
  - Nausea [Recovered/Resolved]
  - Distributive shock [Recovered/Resolved]
  - Abdominal pain [Recovered/Resolved]
  - Arrhythmia [Recovered/Resolved]
  - Intentional overdose [Recovered/Resolved]
  - Drug effect decreased [None]
